FAERS Safety Report 7287218-8 (Version None)
Quarter: 2011Q1

REPORT INFORMATION
  Report Type: 
  Country: None (occurrence: None)
  Receive Date: 20110211
  Receipt Date: 20110203
  Transmission Date: 20110831
  Serious: Yes (Death)
  Sender: FDA-Public Use
  Company Number: JP-BAXTER-2011BH002736

PATIENT
  Sex: Male
  Weight: 100 kg

DRUGS (1)
  1. ADVATE [Suspect]
     Indication: HAEMORRHAGE INTRACRANIAL
     Route: 065

REACTIONS (1)
  - HAEMORRHAGE INTRACRANIAL [None]
